FAERS Safety Report 22181031 (Version 1)
Quarter: 2023Q2

REPORT INFORMATION
  Report Type: Report from Study
  Country: CO (occurrence: CO)
  Receive Date: 20230406
  Receipt Date: 20230406
  Transmission Date: 20230721
  Serious: Yes (Other)
  Sender: FDA-Public Use
  Company Number: CO-ABBVIE-4713455

PATIENT
  Sex: Female
  Weight: 69 kg

DRUGS (1)
  1. HUMIRA [Suspect]
     Active Substance: ADALIMUMAB
     Indication: Rheumatoid arthritis
     Route: 058
     Dates: start: 20090702, end: 20230303

REACTIONS (12)
  - Pneumothorax [Recovering/Resolving]
  - COVID-19 [Recovering/Resolving]
  - Oliguria [Recovering/Resolving]
  - Vulvovaginal burning sensation [Recovering/Resolving]
  - Urinary tract infection [Recovering/Resolving]
  - Asthma [Recovering/Resolving]
  - Vulvovaginal pain [Recovering/Resolving]
  - Nail disorder [Recovered/Resolved]
  - Immunodeficiency [Recovering/Resolving]
  - Nail infection [Recovered/Resolved]
  - Influenza [Recovered/Resolved]
  - Influenza [Not Recovered/Not Resolved]

NARRATIVE: CASE EVENT DATE: 20180101
